FAERS Safety Report 7202078-9 (Version None)
Quarter: 2010Q4

REPORT INFORMATION
  Report Type: 
  Country: None (occurrence: None)
  Receive Date: 20101229
  Receipt Date: 20101224
  Transmission Date: 20110411
  Serious: Yes (Life-Threatening)
  Sender: FDA-Public Use
  Company Number: JP-ASTRAZENECA-2010SE50338

PATIENT
  Age: 32013 Day
  Sex: Male
  Weight: 50 kg

DRUGS (14)
  1. ZOLADEX [Suspect]
     Indication: PROSTATE CANCER
     Route: 058
     Dates: start: 19980722, end: 20101023
  2. WARFARIN [Suspect]
     Indication: CARDIAC VALVE DISEASE
     Route: 048
  3. ODYNE [Concomitant]
     Indication: PROSTATE CANCER
     Route: 048
     Dates: start: 20100313
  4. BLADDERON [Concomitant]
     Indication: NEUROGENIC BLADDER
     Route: 048
  5. POLLAKISU [Concomitant]
     Indication: NEUROGENIC BLADDER
     Route: 048
  6. TAMSULOSIN HCL [Concomitant]
     Indication: BENIGN PROSTATIC HYPERPLASIA
     Route: 048
  7. ALDACTONE [Concomitant]
     Indication: HYPERTENSION
     Route: 048
  8. LASIX [Concomitant]
     Indication: CARDIAC FAILURE
     Route: 048
  9. ITOROL [Concomitant]
     Indication: CARDIAC FAILURE
     Route: 048
  10. ALOSENN [Concomitant]
     Indication: CONSTIPATION
     Route: 048
  11. OMEPRAL [Concomitant]
     Indication: REFLUX OESOPHAGITIS
     Route: 048
  12. BUP-4 [Concomitant]
  13. MIKELAN LA [Concomitant]
  14. AZ [Concomitant]

REACTIONS (1)
  - INJECTION SITE HAEMORRHAGE [None]
